FAERS Safety Report 5890426-1 (Version None)
Quarter: 2008Q3

REPORT INFORMATION
  Report Type: 
  Country: None (occurrence: None)
  Receive Date: 20080921
  Receipt Date: 20080910
  Transmission Date: 20090109
  Serious: Yes (Hospitalization)
  Sender: FDA-Public Use
  Company Number: JP-JNJFOC-20080600943

PATIENT
  Sex: Female
  Weight: 55 kg

DRUGS (11)
  1. REMICADE [Suspect]
     Route: 042
  2. REMICADE [Suspect]
     Indication: RHEUMATOID ARTHRITIS
     Route: 042
  3. METHOTREXATE [Suspect]
     Indication: RHEUMATOID ARTHRITIS
     Route: 048
  4. PREDNISONE TAB [Suspect]
     Indication: RHEUMATOID ARTHRITIS
     Route: 048
  5. PYRIDOXAL PHOSPHATE [Concomitant]
     Indication: PROPHYLAXIS
     Route: 048
  6. ISONIAZID [Concomitant]
     Indication: ANTIBIOTIC PROPHYLAXIS
     Route: 048
  7. FLOMOX [Concomitant]
     Route: 048
  8. SLOW-K [Concomitant]
     Indication: HYPOKALAEMIA
     Route: 048
  9. LASIX [Concomitant]
     Indication: HYPERTENSION
     Route: 048
  10. THEOPHYLLINE [Concomitant]
     Indication: ASTHMA
     Route: 048
  11. KIPRES [Concomitant]
     Indication: ASTHMA
     Route: 048

REACTIONS (4)
  - HERPES ZOSTER [None]
  - PNEUMONIA BACTERIAL [None]
  - PSEUDOMONAS INFECTION [None]
  - TUBERCULOSIS [None]
